FAERS Safety Report 25844785 (Version 1)
Quarter: 2025Q3

REPORT INFORMATION
  Report Type: Report from Study
  Country: EG (occurrence: EG)
  Receive Date: 20250925
  Receipt Date: 20250925
  Transmission Date: 20251021
  Serious: Yes (Death)
  Sender: ROCHE
  Company Number: EG-ROCHE-10000394798

PATIENT
  Sex: Male

DRUGS (1)
  1. TECENTRIQ [Suspect]
     Active Substance: ATEZOLIZUMAB
     Indication: Non-small cell lung cancer
     Route: 042
     Dates: start: 20250811

REACTIONS (4)
  - Death [Fatal]
  - Deep vein thrombosis [Unknown]
  - Mobility decreased [Unknown]
  - Constipation [Unknown]

NARRATIVE: CASE EVENT DATE: 20250811
